FAERS Safety Report 25814622 (Version 1)
Quarter: 2025Q3

REPORT INFORMATION
  Report Type: Spontaneous
  Country: EU (occurrence: EU)
  Receive Date: 20250917
  Receipt Date: 20250917
  Transmission Date: 20251021
  Serious: Yes (Other)
  Sender: ALEXION PHARMACEUTICALS
  Company Number: EU-AstraZeneca-CH-00951076A

PATIENT
  Sex: Female

DRUGS (1)
  1. LYNPARZA [Suspect]
     Active Substance: OLAPARIB
     Indication: Breast neoplasm
     Dosage: 300 MILLIGRAM, BID
     Dates: start: 202407

REACTIONS (1)
  - Intrapulmonary lymphadenopathy [Unknown]

NARRATIVE: CASE EVENT DATE: 20250101
